FAERS Safety Report 9329564 (Version 1)
Quarter: 2013Q2

REPORT INFORMATION
  Report Type: Spontaneous
  Country: US (occurrence: US)
  Receive Date: 20130604
  Receipt Date: 20130604
  Transmission Date: 20140414
  Serious: No
  Sender: FDA-Public Use
  Company Number: US-SANOFI-AVENTIS-2012SA088124

PATIENT
  Age: 65 Year
  Sex: Female
  Weight: 96 kg

DRUGS (5)
  1. LANTUS SOLOSTAR [Suspect]
     Indication: TYPE 2 DIABETES MELLITUS
     Dosage: DOSAGE MENTIONED AS 27 + 2 UNITS
     Route: 058
     Dates: start: 20111030
  2. SOLOSTAR [Suspect]
     Indication: TYPE 2 DIABETES MELLITUS
     Dates: start: 20111030
  3. AMLODIPINE BESILATE [Concomitant]
     Indication: BLOOD PRESSURE
  4. ATORVASTATIN [Concomitant]
     Indication: BLOOD CHOLESTEROL
  5. ALLOPURINOL [Concomitant]
     Indication: NEPHROLITHIASIS

REACTIONS (2)
  - Weight decreased [Unknown]
  - Glycosylated haemoglobin increased [Unknown]
